FAERS Safety Report 9524082 (Version 1)
Quarter: 2013Q3

REPORT INFORMATION
  Report Type: Spontaneous
  Country: CH (occurrence: None)
  Receive Date: 20130912
  Receipt Date: 20130912
  Transmission Date: 20140515
  Serious: Yes (Other)
  Sender: FDA-Public Use
  Company Number: FK201303933

PATIENT
  Age: 31 Year
  Sex: Female

DRUGS (1)
  1. FOLIC ACID (MANUFACTURER UNKNOWN) (FOLIC ACID) (FOLIC ACID) [Suspect]
     Indication: VITAMIN SUPPLEMENTATION

REACTIONS (7)
  - Anaphylactic reaction [None]
  - Pruritus [None]
  - Abdominal pain [None]
  - Urticaria [None]
  - Dyspnoea [None]
  - Pregnancy [None]
  - Exposure during pregnancy [None]
